FAERS Safety Report 24229277 (Version 3)
Quarter: 2024Q3

REPORT INFORMATION
  Report Type: Report from Study
  Country: US (occurrence: US)
  Receive Date: 20240820
  Receipt Date: 20240916
  Transmission Date: 20241016
  Serious: Yes (Other)
  Sender: ABBVIE
  Company Number: US-ABBVIE-5884617

PATIENT
  Sex: Male
  Weight: 71.66 kg

DRUGS (2)
  1. CREON [Suspect]
     Active Substance: PANCRELIPASE AMYLASE\PANCRELIPASE LIPASE\PANCRELIPASE PROTEASE
     Indication: Pancreatic failure
     Dosage: 3 CAPS WITH EACH MEALS; 2 CAPS WITH EACH SNACKS?FORM STRENGTH: 24000 UNIT?STOP DATE TEXT: ROUGHLY...
     Route: 048
     Dates: start: 2017, end: 2022
  2. CREON [Suspect]
     Active Substance: PANCRELIPASE AMYLASE\PANCRELIPASE LIPASE\PANCRELIPASE PROTEASE
     Indication: Pancreatic failure
     Dosage: 4 CAPS WITH EACH MEALS; 2 CAPS WITH EACH SNACKS?FORM STRENGTH: 24000 UNIT
     Route: 048
     Dates: start: 2022

REACTIONS (6)
  - Volvulus of small bowel [Recovered/Resolved]
  - Steatorrhoea [Recovered/Resolved with Sequelae]
  - Diarrhoea [Unknown]
  - Gastrointestinal bacterial overgrowth [Recovered/Resolved]
  - Overgrowth bacterial [Recovered/Resolved]
  - Steatorrhoea [Unknown]

NARRATIVE: CASE EVENT DATE: 20220101
